FAERS Safety Report 17495671 (Version 1)
Quarter: 2020Q1

REPORT INFORMATION
  Report Type: Spontaneous
  Country: IL (occurrence: IL)
  Receive Date: 20200303
  Receipt Date: 20200303
  Transmission Date: 20200409
  Serious: Yes (Hospitalization)
  Sender: FDA-Public Use
  Company Number: IL-BIOMARINAP-IL-2020-128745

PATIENT
  Age: 30 Year
  Sex: Female
  Weight: 45 kg

DRUGS (1)
  1. NAGLAZYME [Suspect]
     Active Substance: GALSULFASE
     Indication: MUCOPOLYSACCHARIDOSIS VI
     Dosage: 45 MILLIGRAM, QW
     Route: 042
     Dates: start: 20160401

REACTIONS (2)
  - Abdominal pain [Recovered/Resolved]
  - Strangulated hernia [Recovered/Resolved]

NARRATIVE: CASE EVENT DATE: 20200220
